FAERS Safety Report 25509538 (Version 4)
Quarter: 2025Q4

REPORT INFORMATION
  Report Type: Report from Study
  Country: JP (occurrence: JP)
  Receive Date: 20250703
  Receipt Date: 20251027
  Transmission Date: 20260117
  Serious: Yes (Death, Hospitalization)
  Sender: SHIONOGI
  Company Number: JP-shionogi-202500001065

PATIENT
  Age: 66 Year
  Sex: Male
  Weight: 75.0 kg

DRUGS (19)
  1. CEFIDEROCOL [Suspect]
     Active Substance: CEFIDEROCOL
     Indication: Enterobacter pneumonia
     Route: 041
     Dates: start: 20250109, end: 20250115
  2. CEFIDEROCOL [Suspect]
     Active Substance: CEFIDEROCOL
     Indication: Sepsis
     Route: 041
     Dates: start: 20250116, end: 20250124
  3. PIPERACILLIN SODIUM\TAZOBACTAM SODIUM [Concomitant]
     Active Substance: PIPERACILLIN SODIUM\TAZOBACTAM SODIUM
     Indication: Enterobacter pneumonia
     Route: 065
     Dates: start: 20250102, end: 20250107
  4. PIPERACILLIN SODIUM\TAZOBACTAM SODIUM [Concomitant]
     Active Substance: PIPERACILLIN SODIUM\TAZOBACTAM SODIUM
     Indication: Sepsis
  5. CEFEPIME [Concomitant]
     Active Substance: CEFEPIME HYDROCHLORIDE
     Indication: Enterobacter pneumonia
     Route: 065
     Dates: start: 20250108, end: 20250109
  6. CEFEPIME [Concomitant]
     Active Substance: CEFEPIME HYDROCHLORIDE
     Indication: Sepsis
  7. FUROSEMIDE [Concomitant]
     Active Substance: FUROSEMIDE
     Indication: Enterobacter pneumonia
     Dosage: SINCE BEFORE THE START OF FETROJA
     Route: 065
     Dates: end: 20250120
  8. FUROSEMIDE [Concomitant]
     Active Substance: FUROSEMIDE
     Indication: Sepsis
  9. CARPERITIDE [Concomitant]
     Active Substance: CARPERITIDE
     Indication: Enterobacter pneumonia
     Dosage: SINCE BEFORE THE START OF FETROJA
     Route: 065
     Dates: end: 20250119
  10. CARPERITIDE [Concomitant]
     Active Substance: CARPERITIDE
     Indication: Sepsis
  11. NOREPINEPHRINE BITARTRATE [Concomitant]
     Active Substance: NOREPINEPHRINE BITARTRATE
     Indication: Enterobacter pneumonia
     Dosage: SINCE BEFORE THE START OF FETROJA
     Route: 065
     Dates: end: 20250124
  12. NOREPINEPHRINE BITARTRATE [Concomitant]
     Active Substance: NOREPINEPHRINE BITARTRATE
     Indication: Sepsis
  13. NOREPINEPHRINE BITARTRATE [Concomitant]
     Active Substance: NOREPINEPHRINE BITARTRATE
     Indication: Aortic dissection
  14. DOPAMINE [Concomitant]
     Active Substance: DOPAMINE HYDROCHLORIDE
     Indication: Enterobacter pneumonia
     Dosage: SINCE BEFORE THE START OF FETROJA
     Route: 065
     Dates: end: 20250124
  15. DOPAMINE [Concomitant]
     Active Substance: DOPAMINE HYDROCHLORIDE
     Indication: Sepsis
  16. BROMHEXINE HYDROCHLORIDE [Concomitant]
     Active Substance: BROMHEXINE HYDROCHLORIDE
     Indication: Enterobacter pneumonia
     Dosage: SINCE BEFORE THE START OF FETROJA
     Route: 065
     Dates: end: 20250120
  17. BROMHEXINE HYDROCHLORIDE [Concomitant]
     Active Substance: BROMHEXINE HYDROCHLORIDE
     Indication: Sepsis
  18. CALCIUM GLUCONATE\DEXTROSE\MAGNESIUM SULFATE\POTASSIUM ACETATE\POTASSI [Concomitant]
     Active Substance: CALCIUM GLUCONATE\DEXTROSE\MAGNESIUM SULFATE\POTASSIUM ACETATE\POTASSIUM PHOSPHATE, DIBASIC\ZINC SUL
     Indication: Enterobacter pneumonia
     Dosage: SINCE BEFORE THE START OF FETROJA
     Route: 065
     Dates: end: 20250124
  19. CALCIUM GLUCONATE\DEXTROSE\MAGNESIUM SULFATE\POTASSIUM ACETATE\POTASSI [Concomitant]
     Active Substance: CALCIUM GLUCONATE\DEXTROSE\MAGNESIUM SULFATE\POTASSIUM ACETATE\POTASSIUM PHOSPHATE, DIBASIC\ZINC SUL
     Indication: Sepsis

REACTIONS (4)
  - Acute respiratory distress syndrome [Fatal]
  - Sepsis [Fatal]
  - Aortic dissection [Fatal]
  - Renal impairment [Not Recovered/Not Resolved]

NARRATIVE: CASE EVENT DATE: 20250116
